FAERS Safety Report 16552232 (Version 1)
Quarter: 2019Q3

REPORT INFORMATION
  Report Type: Spontaneous
  Country: US (occurrence: US)
  Receive Date: 20190710
  Receipt Date: 20190710
  Transmission Date: 20191004
  Serious: No
  Sender: FDA-Public Use
  Company Number: US-UMEDICA-000005

PATIENT
  Age: 83 Year
  Sex: Male

DRUGS (1)
  1. CHLORTALIDONE [Suspect]
     Active Substance: CHLORTHALIDONE
     Indication: HYPERTENSION

REACTIONS (2)
  - Muscular weakness [Unknown]
  - Dysuria [Unknown]
